FAERS Safety Report 25429790 (Version 2)
Quarter: 2025Q2

REPORT INFORMATION
  Report Type: Spontaneous
  Country: AT (occurrence: AT)
  Receive Date: 20250612
  Receipt Date: 20250617
  Transmission Date: 20250716
  Serious: Yes (Other)
  Sender: PFIZER
  Company Number: AT-EVER-2025-Peme-220

PATIENT
  Age: 56 Year
  Sex: Female

DRUGS (7)
  1. CARBOPLATIN [Suspect]
     Active Substance: CARBOPLATIN
     Dates: start: 202308, end: 202311
  2. PEMETREXED [Suspect]
     Active Substance: PEMETREXED
     Indication: Non-small cell lung cancer metastatic
     Dates: start: 202308, end: 202311
  3. PEMETREXED [Suspect]
     Active Substance: PEMETREXED
     Dates: start: 202312
  4. DURVALUMAB [Suspect]
     Active Substance: DURVALUMAB
     Indication: Non-small cell lung cancer metastatic
     Dates: start: 202308, end: 202311
  5. DURVALUMAB [Suspect]
     Active Substance: DURVALUMAB
     Dates: start: 202312
  6. TREMELIMUMAB [Suspect]
     Active Substance: TREMELIMUMAB
     Indication: Non-small cell lung cancer metastatic
     Dates: start: 202308, end: 202311
  7. TREMELIMUMAB [Suspect]
     Active Substance: TREMELIMUMAB
     Dates: start: 202312

REACTIONS (1)
  - Pneumonitis [Recovered/Resolved]
